FAERS Safety Report 11240594 (Version 1)
Quarter: 2015Q3

REPORT INFORMATION
  Report Type: Spontaneous
  Country: US (occurrence: None)
  Receive Date: 20150701
  Receipt Date: 20150701
  Transmission Date: 20151125
  Serious: Yes (Other)
  Sender: FDA-Public Use
  Company Number: None

PATIENT
  Age: 56 Year
  Sex: Male
  Weight: 81.65 kg

DRUGS (1)
  1. HYDROCORTISONE. [Suspect]
     Active Substance: HYDROCORTISONE
     Indication: RASH
     Dates: start: 20150401, end: 20150619

REACTIONS (4)
  - Eczema [None]
  - Anxiety [None]
  - Rash [None]
  - Steroid withdrawal syndrome [None]

NARRATIVE: CASE EVENT DATE: 20150619
